FAERS Safety Report 25023163 (Version 1)
Quarter: 2025Q1

REPORT INFORMATION
  Report Type: Spontaneous
  Country: JP (occurrence: JP)
  Receive Date: 20250228
  Receipt Date: 20250228
  Transmission Date: 20250409
  Serious: Yes (Other)
  Sender: RANBAXY
  Company Number: JP-SUN PHARMACEUTICAL INDUSTRIES LTD-2025RR-497261

PATIENT
  Age: 78 Year
  Sex: Female

DRUGS (4)
  1. SERTRALINE [Suspect]
     Active Substance: SERTRALINE HYDROCHLORIDE
     Indication: Somatic symptom disorder
     Route: 065
  2. ESCITALOPRAM [Suspect]
     Active Substance: ESCITALOPRAM OXALATE
     Indication: Somatic symptom disorder
     Route: 065
  3. ESCITALOPRAM [Suspect]
     Active Substance: ESCITALOPRAM OXALATE
     Route: 065
  4. VORTIOXETINE [Suspect]
     Active Substance: VORTIOXETINE
     Indication: Somatic symptom disorder
     Route: 065

REACTIONS (3)
  - Therapeutic product effect incomplete [Unknown]
  - Somnolence [Recovered/Resolved]
  - Drug ineffective [Unknown]
